FAERS Safety Report 6728429-7 (Version None)
Quarter: 2010Q2

REPORT INFORMATION
  Report Type: 
  Country: None (occurrence: None)
  Receive Date: 20100517
  Receipt Date: 20100504
  Transmission Date: 20101027
  Serious: Yes (Other)
  Sender: FDA-Public Use
  Company Number: US-ELI_LILLY_AND_COMPANY-US201004000259

PATIENT
  Sex: Male

DRUGS (6)
  1. FORTEO [Suspect]
     Indication: HYPOPARATHYROIDISM SECONDARY
     Dosage: 20 UG, 2 OR 3 TIMES PER DAY
     Route: 058
     Dates: start: 20090101
  2. CALCIUM CARBONATE [Concomitant]
     Dosage: 500 MG, 3/D
  3. CALCITRIOL [Concomitant]
     Dosage: 0.2 MG, 2/D
  4. MAGNESIUM OXIDE [Concomitant]
  5. SYNTHROID [Concomitant]
  6. CARBAMAZEPINE [Concomitant]

REACTIONS (8)
  - ASTHENIA [None]
  - HYPERCALCAEMIA [None]
  - MALAISE [None]
  - MUSCLE SPASMS [None]
  - NAUSEA [None]
  - OFF LABEL USE [None]
  - OVERDOSE [None]
  - VOMITING [None]
